FAERS Safety Report 18812226 (Version 1)
Quarter: 2021Q1

REPORT INFORMATION
  Report Type: Spontaneous
  Country: US (occurrence: US)
  Receive Date: 20210129
  Receipt Date: 20210129
  Transmission Date: 20210419
  Serious: Yes (Death)
  Sender: FDA-Public Use
  Company Number: US-ROCHE-2759106

PATIENT
  Age: 89 Year
  Sex: Female

DRUGS (21)
  1. HYOSCYAMINE. [Concomitant]
     Active Substance: HYOSCYAMINE
  2. LORAZEPAM. [Concomitant]
     Active Substance: LORAZEPAM
  3. SMZ?TMP DS [Concomitant]
     Active Substance: SULFAMETHOXAZOLE\TRIMETHOPRIM
  4. DOXYCYCLINI HYCLAS [Concomitant]
  5. DONEPEZIL. [Concomitant]
     Active Substance: DONEPEZIL
  6. ESBRIET [Suspect]
     Active Substance: PIRFENIDONE
     Indication: IDIOPATHIC PULMONARY FIBROSIS
     Route: 048
  7. METRONIDAZOLE. [Concomitant]
     Active Substance: METRONIDAZOLE
  8. DICYCLOMINE [Concomitant]
     Active Substance: DICYCLOMINE HYDROCHLORIDE
  9. FUROSEMIDE. [Concomitant]
     Active Substance: FUROSEMIDE
  10. LISINOPRIL. [Concomitant]
     Active Substance: LISINOPRIL
  11. MORPHINE SULFATE. [Concomitant]
     Active Substance: MORPHINE SULFATE
  12. OMEPRAZOLE. [Concomitant]
     Active Substance: OMEPRAZOLE
  13. QUETIAPINE. [Concomitant]
     Active Substance: QUETIAPINE
  14. TRAMADOL HCL [Concomitant]
     Active Substance: TRAMADOL HYDROCHLORIDE
  15. VANCOMYCIN [Concomitant]
     Active Substance: VANCOMYCIN
  16. WAL?TUSSIN [Concomitant]
     Active Substance: DEXTROMETHORPHAN HYDROBROMIDE
  17. ACETAMIN [Concomitant]
     Active Substance: ACETAMINOPHEN
  18. ASPIRIN 81 [Concomitant]
     Active Substance: ASPIRIN
  19. MIRTAZAPINE. [Concomitant]
     Active Substance: MIRTAZAPINE
  20. CARVEDILOL. [Concomitant]
     Active Substance: CARVEDILOL
  21. CYPROHEPTADINE. [Concomitant]
     Active Substance: CYPROHEPTADINE

REACTIONS (1)
  - Death [Fatal]

NARRATIVE: CASE EVENT DATE: 20210125
